FAERS Safety Report 23813315 (Version 1)
Quarter: 2024Q2

REPORT INFORMATION
  Report Type: Spontaneous
  Country: FR (occurrence: FR)
  Receive Date: 20240503
  Receipt Date: 20240503
  Transmission Date: 20240716
  Serious: Yes (Hospitalization)
  Sender: FDA-Public Use
  Company Number: None

PATIENT
  Age: 80 Year
  Sex: Male
  Weight: 92 kg

DRUGS (20)
  1. PREDNISOLONE SODIUM METASULFOBENZOATE [Suspect]
     Active Substance: PREDNISOLONE SODIUM METAZOATE
     Indication: Prophylaxis against transplant rejection
     Dosage: MORNING?DAILY DOSE: 5 MILLIGRAM
     Route: 048
     Dates: start: 2020
  2. VALGANCICLOVIR [Suspect]
     Active Substance: VALGANCICLOVIR
     Indication: Cytomegalovirus infection
  3. NULOJIX [Suspect]
     Active Substance: BELATACEPT
     Indication: Prophylaxis against transplant rejection
     Dosage: 1 INFUSION OF 750 MG/MONTH, POWDER FOR SOLUTION FOR DILUTED INFUSION
     Route: 042
     Dates: start: 20210421, end: 20221216
  4. NULOJIX [Suspect]
     Active Substance: BELATACEPT
     Indication: Prophylaxis against transplant rejection
     Route: 042
     Dates: start: 20221216, end: 20231002
  5. NULOJIX [Suspect]
     Active Substance: BELATACEPT
     Indication: Prophylaxis against transplant rejection
     Route: 042
     Dates: start: 20231002, end: 202402
  6. CELLCEPT [Suspect]
     Active Substance: MYCOPHENOLATE MOFETIL
     Indication: Prophylaxis against transplant rejection
     Dosage: DAILY DOSE: 1500 MILLIGRAM
     Route: 048
     Dates: start: 2020, end: 20200728
  7. CELLCEPT [Suspect]
     Active Substance: MYCOPHENOLATE MOFETIL
     Indication: Prophylaxis against transplant rejection
     Dosage: DAILY DOSE: 1000 MILLIGRAM
     Route: 048
     Dates: start: 20200728, end: 20240211
  8. AMITRIPTYLINE HYDROCHLORIDE [Concomitant]
     Active Substance: AMITRIPTYLINE HYDROCHLORIDE
     Dosage: DAILY DOSE: 25 MILLIGRAM
  9. PERINDOPRIL [Concomitant]
     Active Substance: PERINDOPRIL
     Dosage: DAILY DOSE: 2 MILLIGRAM
  10. WARFARIN SODIUM [Concomitant]
     Active Substance: WARFARIN SODIUM
     Dosage: 1.5 TABLETS IN THE EVENING TO BE ADJUSTED TO ACHIEVE AN INR (BETWEEN 2 AND 3)
  11. LIPTRUZET [Concomitant]
     Active Substance: ATORVASTATIN CALCIUM\EZETIMIBE
     Dosage: DAILY DOSE: 1 DOSAGE FORM
  12. LANTUS [Concomitant]
     Active Substance: INSULIN GLARGINE
     Dosage: 3 IU 1X/D
  13. AMLODIPINE [Concomitant]
     Active Substance: AMLODIPINE BESYLATE
     Dosage: DAILY DOSE: 5 MILLIGRAM
  14. NOVORAPID [Concomitant]
     Active Substance: INSULIN ASPART
     Dosage: 10 IU MORNING / 8 IU MIDDAY / 0 IU EVENING
  15. FUROSEMIDE [Concomitant]
     Active Substance: FUROSEMIDE
     Dosage: 1 TABLET IN THE MORNING AND 0.5 TABLET AT LUNCH TIME
  16. LIDOCAINE [Concomitant]
     Active Substance: LIDOCAINE
     Dosage: BID?DAILY DOSE: 2 DOSAGE FORM
  17. BISOPROLOL [Concomitant]
     Active Substance: BISOPROLOL\BISOPROLOL FUMARATE
     Dosage: DAILY DOSE: 1 DOSAGE FORM
  18. CHOLECALCIFEROL [Concomitant]
     Active Substance: CHOLECALCIFEROL
     Dosage: 1X/MONTH
  19. DOLIPRANE [Concomitant]
     Active Substance: ACETAMINOPHEN
     Dosage: BID?DAILY DOSE: 1000 MILLIGRAM
  20. SODIUM BICARBONATE [Concomitant]
     Active Substance: SODIUM BICARBONATE
     Dosage: BID?DAILY DOSE: 2 DOSAGE FORM

REACTIONS (2)
  - Atypical mycobacterial pneumonia [Recovering/Resolving]
  - Off label use [Unknown]

NARRATIVE: CASE EVENT DATE: 20240208
